FAERS Safety Report 13628502 (Version 2)
Quarter: 2017Q3

REPORT INFORMATION
  Report Type: Spontaneous
  Country: US (occurrence: US)
  Receive Date: 20170608
  Receipt Date: 20170809
  Transmission Date: 20171127
  Serious: Yes (Death, Hospitalization, Other)
  Sender: FDA-Public Use
  Company Number: US-PFIZER INC-2017249310

PATIENT
  Age: 64 Year
  Sex: Male

DRUGS (2)
  1. LYRICA [Suspect]
     Active Substance: PREGABALIN
     Indication: MULTIPLE SCLEROSIS
     Dosage: 300 MG, UNK
  2. LYRICA [Suspect]
     Active Substance: PREGABALIN
     Indication: MOVEMENT DISORDER

REACTIONS (15)
  - Condition aggravated [Fatal]
  - Gangrene [Unknown]
  - Heart rate increased [Unknown]
  - Fall [Unknown]
  - Cardiovascular disorder [Unknown]
  - Skin lesion [Unknown]
  - Product use in unapproved indication [Unknown]
  - Abscess limb [Unknown]
  - Feeding disorder [Unknown]
  - Impaired healing [Unknown]
  - Sepsis [Fatal]
  - Blood pressure decreased [Unknown]
  - Peripheral vascular disorder [Unknown]
  - Multiple sclerosis [Fatal]
  - Balance disorder [Unknown]
